FAERS Safety Report 6896456-5 (Version None)
Quarter: 2010Q3

REPORT INFORMATION
  Report Type: 
  Country: None (occurrence: None)
  Receive Date: 20100802
  Receipt Date: 20090226
  Transmission Date: 20110219
  Serious: No
  Sender: FDA-Public Use
  Company Number: US-PFIZER INC-2009176999

PATIENT
  Sex: Female
  Weight: 61.224 kg

DRUGS (1)
  1. GABAPENTIN [Suspect]
     Indication: SPINAL COLUMN STENOSIS
     Dosage: 300MG IN THE MORNING, 300MG IN MIDDAY, 600MG AT BEDTIME
     Route: 048
     Dates: start: 20090101

REACTIONS (1)
  - FEELING HOT [None]
